FAERS Safety Report 8107488-3 (Version None)
Quarter: 2011Q4

REPORT INFORMATION
  Report Type: 
  Country: None (occurrence: None)
  Receive Date: 20111223
  Receipt Date: 20110117
  Transmission Date: 20120403
  Serious: Yes (Hospitalization)
  Sender: FDA-Public Use
  Company Number: 321728

PATIENT
  Age: 64 Year
  Sex: Female
  Weight: 94.8 kg

DRUGS (3)
  1. LEVEMIR [Suspect]
     Indication: DIABETES MELLITUS
     Dosage: 6 U, BID, SUBCUTANEOUS ; 40 U, IN THE MORNING AND 35 IN THE EVENING, SUBCUTANEOUS
     Route: 058
     Dates: start: 20100801
  2. LEVEMIR [Suspect]
     Indication: DIABETES MELLITUS
     Dosage: 6 U, BID, SUBCUTANEOUS ; 40 U, IN THE MORNING AND 35 IN THE EVENING, SUBCUTANEOUS
     Route: 058
     Dates: start: 20100901
  3. SYNTHROID [Concomitant]

REACTIONS (1)
  - BLOOD GLUCOSE INCREASED [None]
